FAERS Safety Report 4767549-3 (Version None)
Quarter: 2005Q3

REPORT INFORMATION
  Report Type: 
  Country: None (occurrence: None)
  Receive Date: 20050913
  Receipt Date: 20050310
  Transmission Date: 20060218
  Serious: Yes (Hospitalization, Disabling)
  Sender: FDA-Public Use
  Company Number: US-MERCK-0503USA01923

PATIENT
  Age: 52 Year
  Sex: Male
  Weight: 75 kg

DRUGS (2)
  1. VIOXX [Suspect]
     Indication: OSTEOARTHRITIS
     Route: 048
     Dates: start: 20020616, end: 20040101
  2. VIOXX [Suspect]
     Route: 048
     Dates: start: 20020616, end: 20040101

REACTIONS (11)
  - CARDIAC DISORDER [None]
  - CEREBRAL DISORDER [None]
  - CORONARY ARTERY DISEASE [None]
  - DEPRESSION [None]
  - EMOTIONAL DISTRESS [None]
  - HEADACHE [None]
  - HYPERCHOLESTEROLAEMIA [None]
  - INTRACRANIAL ANEURYSM [None]
  - JOINT INJURY [None]
  - MYOCARDIAL INFARCTION [None]
  - PHARYNGOLARYNGEAL PAIN [None]
